FAERS Safety Report 7779428-8 (Version None)
Quarter: 2011Q3

REPORT INFORMATION
  Report Type: 
  Country: None (occurrence: None)
  Receive Date: 20110927
  Receipt Date: 20110921
  Transmission Date: 20111222
  Serious: No
  Sender: FDA-Public Use
  Company Number: US-BIOGENIDEC-2011BI030338

PATIENT
  Sex: Female

DRUGS (1)
  1. TYSABRI [Suspect]
     Indication: MULTIPLE SCLEROSIS
     Route: 042
     Dates: start: 20081028

REACTIONS (5)
  - BUNION [None]
  - GAIT DISTURBANCE [None]
  - SOMNOLENCE [None]
  - PROCEDURAL PAIN [None]
  - STEROID THERAPY [None]
